FAERS Safety Report 16967428 (Version 1)
Quarter: 2019Q4

REPORT INFORMATION
  Report Type: Spontaneous
  Country: US (occurrence: US)
  Receive Date: 20191028
  Receipt Date: 20191028
  Transmission Date: 20200122
  Serious: No
  Sender: FDA-Public Use
  Company Number: US-ELI_LILLY_AND_COMPANY-US201910013558

PATIENT

DRUGS (1)
  1. EMGALITY [Suspect]
     Active Substance: GALCANEZUMAB-GNLM
     Indication: HEMIPLEGIC MIGRAINE
     Dosage: 1 DOSAGE FORM, UNKNOWN
     Route: 065

REACTIONS (1)
  - Diarrhoea [Unknown]
